APPROVED DRUG PRODUCT: AMOXICILLIN AND CLAVULANATE POTASSIUM
Active Ingredient: AMOXICILLIN; CLAVULANATE POTASSIUM
Strength: 500MG;EQ 125MG BASE
Dosage Form/Route: TABLET;ORAL
Application: A209992 | Product #001 | TE Code: AB
Applicant: DEVA HOLDING AS
Approved: Sep 15, 2023 | RLD: No | RS: No | Type: RX